FAERS Safety Report 20391311 (Version 1)
Quarter: 2022Q1

REPORT INFORMATION
  Report Type: Spontaneous
  Country: US (occurrence: US)
  Receive Date: 20220128
  Receipt Date: 20220128
  Transmission Date: 20220423
  Serious: No
  Sender: FDA-Public Use
  Company Number: US-GLAXOSMITHKLINE-USCH2022003079

PATIENT
  Age: 46 Year
  Sex: Male

DRUGS (2)
  1. NICORETTE [Suspect]
     Active Substance: NICOTINE
     Indication: Smoking cessation therapy
     Dosage: UNK
     Dates: start: 20220121, end: 20220121
  2. NICORETTE [Suspect]
     Active Substance: NICOTINE
     Dosage: UNK

REACTIONS (3)
  - Oral discomfort [Recovered/Resolved]
  - Stomatitis [Recovered/Resolved]
  - Expired product administered [Unknown]
